FAERS Safety Report 4633542-4 (Version None)
Quarter: 2005Q2

REPORT INFORMATION
  Report Type: 
  Country: None (occurrence: None)
  Receive Date: 20050331
  Receipt Date: 20041206
  Transmission Date: 20051028
  Serious: Yes (Other)
  Sender: FDA-Public Use
  Company Number: 200415882BCC

PATIENT
  Age: 47 Year
  Sex: Female
  Weight: 61.2356 kg

DRUGS (1)
  1. ALEVE [Suspect]
     Indication: PAIN
     Dosage: 440 MG, ONCE, ORAL
     Route: 048
     Dates: start: 20041202

REACTIONS (4)
  - EXCORIATION [None]
  - HYPERSENSITIVITY [None]
  - RASH [None]
  - SWELLING FACE [None]
